FAERS Safety Report 22630458 (Version 1)
Quarter: 2023Q2

REPORT INFORMATION
  Report Type: Spontaneous
  Country: JP (occurrence: JP)
  Receive Date: 20230622
  Receipt Date: 20230622
  Transmission Date: 20230722
  Serious: Yes (Death, Other)
  Sender: FDA-Public Use
  Company Number: JP-AMGEN-JPNSP2023106735

PATIENT

DRUGS (1)
  1. EVENITY [Suspect]
     Active Substance: ROMOSOZUMAB-AQQG
     Indication: Osteoporosis
     Dosage: 210 MILLIGRAM
     Route: 058

REACTIONS (15)
  - Death [Fatal]
  - Acute myocardial infarction [Unknown]
  - Cardiac failure [Unknown]
  - Cerebral infarction [Unknown]
  - Chest discomfort [Unknown]
  - Palpitations [Unknown]
  - Presyncope [Unknown]
  - Constipation [Unknown]
  - Diarrhoea [Unknown]
  - Malaise [Unknown]
  - Thirst [Unknown]
  - Pyrexia [Unknown]
  - Dizziness [Unknown]
  - Arthralgia [Unknown]
  - Injection site reaction [Unknown]
